FAERS Safety Report 25993840 (Version 4)
Quarter: 2025Q4

REPORT INFORMATION
  Report Type: Spontaneous
  Country: US (occurrence: None)
  Receive Date: 20251104
  Receipt Date: 20251223
  Transmission Date: 20260117
  Serious: Yes (Hospitalization)
  Sender: SYNDAX
  Company Number: US-SYNDAX PHARMACEUTICALS, INC.-2025US000850

PATIENT
  Sex: Female
  Weight: 64.671 kg

DRUGS (3)
  1. REVUFORJ [Suspect]
     Active Substance: REVUMENIB CITRATE
     Indication: Acute myeloid leukaemia
     Dosage: 160 MILLIGRAM, BID
     Route: 061
  2. REVUFORJ [Suspect]
     Active Substance: REVUMENIB CITRATE
     Dosage: 160 MILLIGRAM, DAILY
     Route: 061
  3. REVUFORJ [Suspect]
     Active Substance: REVUMENIB CITRATE
     Dosage: 160 MILLIGRAM, DAILY
     Route: 061
     Dates: start: 20251125

REACTIONS (6)
  - Platelet count decreased [Unknown]
  - Product dose omission issue [Unknown]
  - Inflammation [Unknown]
  - Skin swelling [Unknown]
  - Medication error [Unknown]
  - Arthralgia [Unknown]
